FAERS Safety Report 6413241-9 (Version None)
Quarter: 2009Q4

REPORT INFORMATION
  Report Type: 
  Country: None (occurrence: None)
  Receive Date: 20091026
  Receipt Date: 20091014
  Transmission Date: 20100525
  Serious: Yes (Death, Life-Threatening, Hospitalization, Other)
  Sender: FDA-Public Use
  Company Number: BR-PFIZER INC-2009187951

PATIENT
  Sex: Male
  Weight: 74.6 kg

DRUGS (22)
  1. MARAVIROC [Suspect]
     Indication: HIV INFECTION
     Dosage: 150 MG, 2X/DAY
     Route: 048
     Dates: start: 20080805
  2. CIPROFIBRATE [Concomitant]
     Dosage: UNK
     Route: 048
     Dates: start: 20081119
  3. CIPROFIBRATE [Concomitant]
     Dosage: UNK
     Route: 048
     Dates: start: 20090331
  4. ASCORBIC ACID [Concomitant]
     Dosage: UNK
     Route: 048
     Dates: start: 19920101
  5. ASCORBIC ACID [Concomitant]
     Dosage: UNK
     Route: 048
     Dates: start: 20090331
  6. VALACICLOVIR [Concomitant]
     Dosage: UNK
     Route: 048
     Dates: start: 20010101
  7. VALACICLOVIR [Concomitant]
     Dosage: UNK
     Route: 048
     Dates: start: 20090128, end: 20090318
  8. VALACICLOVIR [Concomitant]
     Dosage: UNK
     Route: 048
     Dates: start: 20090328, end: 20090502
  9. VALACICLOVIR [Concomitant]
     Dosage: UNK
     Route: 048
     Dates: start: 20090502, end: 20090621
  10. VALACICLOVIR [Concomitant]
     Dosage: UNK
     Route: 048
     Dates: start: 20090628
  11. FLUTICASONE PROPIONATE [Concomitant]
     Dosage: UNK
     Route: 055
     Dates: start: 20080810
  12. VITAMIN E [Concomitant]
     Dosage: UNK
     Route: 048
     Dates: start: 19920101
  13. VITAMIN E [Concomitant]
     Dosage: UNK
     Route: 048
     Dates: start: 20090331
  14. TENOFOVIR [Concomitant]
     Dosage: UNK
     Route: 048
     Dates: start: 20040815
  15. LAMIVUDINE [Concomitant]
     Dosage: UNK
     Route: 048
     Dates: start: 20031014
  16. RALTEGRAVIR [Concomitant]
     Dosage: UNK
     Route: 048
     Dates: start: 20080805
  17. DARUNAVIR [Concomitant]
     Dosage: UNK
     Route: 048
     Dates: start: 20050321
  18. DARUNAVIR [Concomitant]
     Dosage: UNK
     Route: 048
     Dates: start: 20090321
  19. RITONAVIR [Concomitant]
     Dosage: UNK
     Route: 048
     Dates: start: 20090922
  20. CEPHALEXIN [Concomitant]
     Dosage: UNK
     Route: 048
     Dates: start: 20090902, end: 20090909
  21. METAMIZOLE [Concomitant]
     Dosage: UNK
     Route: 048
     Dates: start: 20090330, end: 20090418
  22. TOCOPHEROL [Concomitant]
     Dosage: UNK
     Route: 048
     Dates: start: 20090331

REACTIONS (3)
  - NEOPLASM OF APPENDIX [None]
  - PSEUDOMYXOMA PERITONEI [None]
  - SEPSIS [None]
